FAERS Safety Report 8395199-9 (Version None)
Quarter: 2012Q2

REPORT INFORMATION
  Report Type: 
  Country: None (occurrence: None)
  Receive Date: 20120530
  Receipt Date: 20120521
  Transmission Date: 20120825
  Serious: Yes (Other)
  Sender: FDA-Public Use
  Company Number: JP-VERTEX PHARMACEUTICALS INC.-AE-2012-007731

PATIENT
  Age: 67 Year
  Sex: Male

DRUGS (4)
  1. TELAVIC (TELAPREVIR) [Suspect]
     Indication: HEPATITIS C
     Route: 048
     Dates: start: 20120221
  2. URSO 250 [Concomitant]
     Route: 048
     Dates: end: 20120312
  3. PEGINTERFERON ALFA-2B [Concomitant]
     Route: 051
     Dates: start: 20120221
  4. RIBAVIRIN [Concomitant]
     Route: 048
     Dates: start: 20120221

REACTIONS (1)
  - DRUG ERUPTION [None]
